FAERS Safety Report 21925796 (Version 1)
Quarter: 2023Q1

REPORT INFORMATION
  Report Type: Spontaneous
  Country: US (occurrence: None)
  Receive Date: 20230127
  Receipt Date: 20230127
  Transmission Date: 20230418
  Serious: Yes (Other)
  Sender: FDA-Public Use
  Company Number: None

PATIENT
  Age: 59 Year
  Sex: Male

DRUGS (3)
  1. TALTZ [Suspect]
     Active Substance: IXEKIZUMAB
     Indication: Psoriatic arthropathy
     Dosage: 80MG/ML SUBCUTANEOUS??INJECT  80 MG UNDER THE SKIN (SUBCUTANEOUS INJECTION) EVERY 4 WEEKS )MAINTENAN
     Route: 058
     Dates: start: 20230127
  2. TALTZ [Suspect]
     Active Substance: IXEKIZUMAB
     Dosage: FREQUENCY : MONTHLY;?
     Route: 058
  3. SYMBICORT [Concomitant]
     Active Substance: BUDESONIDE\FORMOTEROL FUMARATE DIHYDRATE

REACTIONS (2)
  - Therapy interrupted [None]
  - Psoriasis [None]

NARRATIVE: CASE EVENT DATE: 20220903
